FAERS Safety Report 13106151 (Version 2)
Quarter: 2017Q1

REPORT INFORMATION
  Report Type: Spontaneous
  Country: IE (occurrence: IE)
  Receive Date: 20170111
  Receipt Date: 20170210
  Transmission Date: 20170428
  Serious: Yes (Hospitalization, Other)
  Sender: FDA-Public Use
  Company Number: IE-PFIZER INC-2017012231

PATIENT
  Age: 2 Year
  Sex: Male

DRUGS (1)
  1. METHOTREXATE SODIUM. [Suspect]
     Active Substance: METHOTREXATE SODIUM
     Dosage: SUSPECTED INTAKE WAS GREATER THAN 3MG/KG
     Route: 048

REACTIONS (6)
  - Vomiting [Recovered/Resolved]
  - Accidental exposure to product [Recovered/Resolved]
  - Psychomotor hyperactivity [Recovered/Resolved]
  - Blood alkaline phosphatase increased [Recovered/Resolved]
  - Overdose [Recovered/Resolved]
  - Leukocytosis [Recovered/Resolved]
